FAERS Safety Report 22823368 (Version 2)
Quarter: 2023Q4

REPORT INFORMATION
  Report Type: Spontaneous
  Country: US (occurrence: US)
  Receive Date: 20230815
  Receipt Date: 20231016
  Transmission Date: 20240110
  Serious: Yes (Other)
  Sender: FDA-Public Use
  Company Number: US-NOVOPROD-1102368

PATIENT
  Sex: Female
  Weight: 68.027 kg

DRUGS (1)
  1. OZEMPIC [Suspect]
     Active Substance: SEMAGLUTIDE
     Indication: Product used for unknown indication
     Dosage: UNK
     Route: 058
     Dates: start: 20211014, end: 20221207

REACTIONS (2)
  - Parathyroid tumour benign [Recovered/Resolved]
  - Condition aggravated [Recovered/Resolved]
